FAERS Safety Report 4709745-7 (Version None)
Quarter: 2005Q3

REPORT INFORMATION
  Report Type: 
  Country: None (occurrence: None)
  Receive Date: 20050707
  Receipt Date: 20050621
  Transmission Date: 20060218
  Serious: Yes (Hospitalization)
  Sender: FDA-Public Use
  Company Number: US_0506119473

PATIENT
  Age: 1 Day
  Sex: Male
  Weight: 3 kg

DRUGS (1)
  1. HUMULIN N [Suspect]
     Dates: start: 20040101, end: 20050307

REACTIONS (6)
  - DRUG EXPOSURE DURING PREGNANCY [None]
  - GRUNTING [None]
  - JAUNDICE NEONATAL [None]
  - LUNG DISORDER [None]
  - PHARMACEUTICAL PRODUCT COMPLAINT [None]
  - PREMATURE BABY [None]
